FAERS Safety Report 9943043 (Version 2)
Quarter: 2014Q3

REPORT INFORMATION
  Report Type: Spontaneous
  Country: US (occurrence: US)
  Receive Date: 20140303
  Receipt Date: 20140718
  Transmission Date: 20150326
  Serious: Yes (Death, Hospitalization)
  Sender: FDA-Public Use
  Company Number: US-JNJFOC-20140300491

PATIENT
  Age: 74 Year
  Sex: Male
  Weight: 83.5 kg

DRUGS (11)
  1. XARELTO [Concomitant]
     Active Substance: RIVAROXABAN
     Route: 048
     Dates: start: 20131209
  2. AMIODARONE [Concomitant]
     Active Substance: AMIODARONE
     Indication: PALPITATIONS
     Route: 048
     Dates: start: 20140117
  3. RESTASIS [Concomitant]
     Active Substance: CYCLOSPORINE
     Route: 047
     Dates: start: 20131122
  4. TIMOLOL [Concomitant]
     Active Substance: TIMOLOL
     Route: 047
     Dates: start: 20130616
  5. IMBRUVICA [Suspect]
     Active Substance: IBRUTINIB
     Indication: MANTLE CELL LYMPHOMA
     Route: 048
     Dates: start: 20131114, end: 20140118
  6. ALPHAGAN P [Concomitant]
     Active Substance: BRIMONIDINE TARTRATE
     Route: 047
     Dates: start: 20130613
  7. XALATAN [Concomitant]
     Active Substance: LATANOPROST
     Route: 047
     Dates: start: 20131113
  8. ASPIRIN. [Concomitant]
     Active Substance: ASPIRIN
     Route: 048
     Dates: start: 20131209
  9. PROPAFENONE. [Concomitant]
     Active Substance: PROPAFENONE
     Route: 048
     Dates: start: 20131111
  10. LASIX [Concomitant]
     Active Substance: FUROSEMIDE
     Indication: OEDEMA PERIPHERAL
     Dates: end: 201401
  11. TREANDA [Concomitant]
     Active Substance: BENDAMUSTINE HYDROCHLORIDE
     Dates: start: 20131209

REACTIONS (3)
  - Disease progression [Fatal]
  - Renal impairment [Unknown]
  - Tumour lysis syndrome [Unknown]

NARRATIVE: CASE EVENT DATE: 20140118
